FAERS Safety Report 23516808 (Version 2)
Quarter: 2024Q1

REPORT INFORMATION
  Report Type: Spontaneous
  Country: US (occurrence: US)
  Receive Date: 20240213
  Receipt Date: 20240223
  Transmission Date: 20240410
  Serious: Yes (Other)
  Sender: FDA-Public Use
  Company Number: US-SUN PHARMACEUTICAL INDUSTRIES LTD-2024R1-431054

PATIENT
  Sex: Male

DRUGS (1)
  1. ODOMZO [Suspect]
     Active Substance: SONIDEGIB
     Indication: Product used for unknown indication
     Dosage: UNK
     Route: 065

REACTIONS (9)
  - Neoplasm [Unknown]
  - Oropharyngeal pain [Unknown]
  - Impaired healing [Unknown]
  - Ageusia [Unknown]
  - Appetite disorder [Unknown]
  - Weight decreased [Unknown]
  - Asthenia [Unknown]
  - Arthralgia [Unknown]
  - Alopecia [Unknown]
